FAERS Safety Report 5365917-2 (Version None)
Quarter: 2007Q2

REPORT INFORMATION
  Report Type: 
  Country: None (occurrence: None)
  Receive Date: 20070611
  Receipt Date: 20070130
  Transmission Date: 20071010
  Serious: Yes (Other)
  Sender: FDA-Public Use
  Company Number: USA-2007-0026356

PATIENT
  Sex: Female

DRUGS (4)
  1. OXYCONTIN [Suspect]
     Indication: DRUG ABUSER
  2. AMPHETAMINE SULFATE [Suspect]
     Indication: DRUG ABUSER
  3. OPIUM ALKALOIDS TOTAL (OPIUM ALKALOIDS TOTAL) [Suspect]
     Indication: DRUG ABUSER
  4. COCAINE (COCAINE) [Suspect]
     Indication: DRUG ABUSER

REACTIONS (4)
  - AGITATION [None]
  - DELUSIONAL DISORDER, UNSPECIFIED TYPE [None]
  - PANIC DISORDER [None]
  - SUBSTANCE ABUSE [None]
